FAERS Safety Report 5020845-7 (Version None)
Quarter: 2006Q2

REPORT INFORMATION
  Report Type: 
  Country: None (occurrence: None)
  Receive Date: 20060608
  Receipt Date: 20040902
  Transmission Date: 20061013
  Serious: Yes (Hospitalization)
  Sender: FDA-Public Use
  Company Number: DE-ABBOTT-04P-062-0272289-03

PATIENT
  Sex: Female
  Weight: 53 kg

DRUGS (13)
  1. HUMIRA [Suspect]
     Indication: RHEUMATOID ARTHRITIS
     Dosage: 40 MG
     Route: 058
     Dates: start: 20010226, end: 20031112
  2. HUMIRA [Suspect]
     Dosage: 40 MG
     Route: 058
     Dates: start: 20040114, end: 20040901
  3. HUMIRA [Suspect]
     Dosage: 40 MG
     Route: 058
     Dates: start: 20040915
  4. PREDNISOLONE [Concomitant]
     Indication: RHEUMATOID ARTHRITIS
     Dosage: 7.5/5 MG
     Route: 048
     Dates: start: 19800101
  5. PREDNISOLONE [Concomitant]
     Dosage: 7.5/5 MG
     Route: 048
     Dates: start: 20040902
  6. WARFARIN [Concomitant]
     Indication: INTRACRANIAL VENOUS SINUS THROMBOSIS
     Route: 048
     Dates: start: 20031212
  7. ROFECOXIB [Concomitant]
     Indication: RHEUMATOID ARTHRITIS
     Route: 048
     Dates: start: 20040412
  8. OMEPRAZOLE [Concomitant]
     Indication: PROPHYLAXIS AGAINST GASTROINTESTINAL ULCER
     Route: 048
     Dates: start: 20021101
  9. ALENDRONATE SODIUM [Concomitant]
     Indication: OSTEOPOROSIS PROPHYLAXIS
     Route: 048
     Dates: start: 20021101
  10. TOCOPHEROL CONCENTRATE CAP [Concomitant]
     Indication: DRUG USE FOR UNKNOWN INDICATION
     Route: 048
     Dates: start: 19990601
  11. CALCIUM GLUCONATE [Concomitant]
     Indication: OSTEOPOROSIS PROPHYLAXIS
     Dates: start: 20021101
  12. IBUPROFEN [Concomitant]
     Indication: RHEUMATOID ARTHRITIS
     Route: 048
     Dates: start: 20041001
  13. CALCIGEN [Concomitant]
     Indication: OSTEOPOROSIS PROPHYLAXIS
     Route: 048

REACTIONS (11)
  - AMAUROSIS [None]
  - BENIGN INTRACRANIAL HYPERTENSION [None]
  - CSF PRESSURE INCREASED [None]
  - CSF TEST ABNORMAL [None]
  - HEADACHE [None]
  - OPTIC ATROPHY [None]
  - PAPILLOEDEMA [None]
  - SCOTOMA [None]
  - VENOUS THROMBOSIS [None]
  - VISUAL ACUITY REDUCED [None]
  - VISUAL FIELD DEFECT [None]
